FAERS Safety Report 11488248 (Version 1)
Quarter: 2015Q3

REPORT INFORMATION
  Report Type: Spontaneous
  Country: US (occurrence: US)
  Receive Date: 20150910
  Receipt Date: 20150910
  Transmission Date: 20151125
  Serious: Yes (Hospitalization)
  Sender: FDA-Public Use
  Company Number: US-ROCHE-1454425

PATIENT
  Sex: Male

DRUGS (6)
  1. COPEGUS [Suspect]
     Active Substance: RIBAVIRIN
     Route: 048
  2. COPEGUS [Suspect]
     Active Substance: RIBAVIRIN
     Indication: CHRONIC HEPATITIS C
     Route: 048
     Dates: start: 20140625
  3. TYLENOL EXTRA STRENGTH [Concomitant]
     Active Substance: ACETAMINOPHEN
     Indication: PREMEDICATION
     Dosage: 2 TAB 30 MINUTES BEFORE INJECTION
     Route: 065
  4. ADVIL [Concomitant]
     Active Substance: IBUPROFEN
     Dosage: 2 TAB 30 MINUTES AFTER INJECTION
     Route: 065
  5. SOVALDI [Suspect]
     Active Substance: SOFOSBUVIR
     Indication: CHRONIC HEPATITIS C
     Route: 065
     Dates: start: 20140625
  6. PEGASYS [Suspect]
     Active Substance: PEGINTERFERON ALFA-2A
     Indication: CHRONIC HEPATITIS C
     Route: 058
     Dates: start: 20140625

REACTIONS (5)
  - Memory impairment [Unknown]
  - Temperature intolerance [Unknown]
  - Blood test abnormal [Unknown]
  - Localised infection [Unknown]
  - Tumour marker increased [Not Recovered/Not Resolved]
